FAERS Safety Report 9726403 (Version 2)
Quarter: 2013Q4

REPORT INFORMATION
  Report Type: Spontaneous
  Country: IT (occurrence: None)
  Receive Date: 20131129
  Receipt Date: 20131217
  Transmission Date: 20140711
  Serious: Yes (Other)
  Sender: FDA-Public Use
  Company Number: AUR-APL-2013-09843

PATIENT
  Age: 50 Year
  Sex: Male

DRUGS (3)
  1. MIRTAZAPINE [Suspect]
     Indication: PRODUCT USED FOR UNKNOWN INDICATION
     Dosage: 1 DOSAGE FORMS (1 DOSAGE FORMS, 1 IN 1 D), ORAL
     Route: 048
     Dates: start: 20131108, end: 20131108
  2. LEVOPRAID (SULPIRIDE) [Concomitant]
  3. CO EFFERALGAN (PANADEINE CO) [Concomitant]

REACTIONS (4)
  - Hypotension [None]
  - Syncope [None]
  - Fall [None]
  - Head injury [None]
